FAERS Safety Report 8500845-2 (Version None)
Quarter: 2012Q3

REPORT INFORMATION
  Report Type: 
  Country: None (occurrence: None)
  Receive Date: 20120710
  Receipt Date: 20120112
  Transmission Date: 20120928
  Serious: Yes (Death)
  Sender: FDA-Public Use
  Company Number: US-ROCHE-1085588

PATIENT
  Sex: Female

DRUGS (4)
  1. ZELBORAF [Suspect]
  2. ZELBORAF [Suspect]
     Indication: SKIN CANCER
     Dates: start: 20111104, end: 20111111
  3. ZELBORAF [Suspect]
     Indication: NEOPLASM MALIGNANT
  4. ZELBORAF [Suspect]
     Indication: BONE NEOPLASM MALIGNANT

REACTIONS (1)
  - DEATH [None]
